FAERS Safety Report 9574537 (Version 3)
Quarter: 2013Q4

REPORT INFORMATION
  Report Type: Report from Study
  Country: JP (occurrence: JP)
  Receive Date: 20131001
  Receipt Date: 20131118
  Transmission Date: 20140711
  Serious: Yes (Death, Hospitalization, Other)
  Sender: FDA-Public Use
  Company Number: JP-TAKEDA-2013TJP001326

PATIENT
  Age: 79 Year
  Sex: Male

DRUGS (16)
  1. MAGMITT [Concomitant]
     Indication: CONSTIPATION
     Dosage: 990 MG, 1 DAYS
     Route: 048
  2. ADALAT CR [Concomitant]
     Dosage: 20 MG, 1 DAYS
     Route: 048
  3. NOVORAPID [Concomitant]
     Dosage: 7 IU, TID
     Route: 042
  4. NOVOLIN [Concomitant]
     Dosage: 2 IU, QD
     Route: 042
  5. LANSOPRAZOLE [Suspect]
     Indication: PROPHYLAXIS AGAINST GASTROINTESTINAL ULCER
     Dosage: 15 MG, QD
     Route: 048
     Dates: start: 20120706, end: 20130219
  6. BAYASPIRIN [Concomitant]
     Indication: THROMBOSIS PROPHYLAXIS
     Dosage: 100 MG, 1 DAYS
     Route: 048
     Dates: start: 20120706
  7. PLAVIX [Concomitant]
     Indication: ANGINA PECTORIS
     Dosage: 75 MG, 1 DAYS
     Route: 048
     Dates: start: 20120706
  8. SIGMART [Concomitant]
     Dosage: 15 MG, 1 DAYS
     Route: 048
     Dates: start: 20120706
  9. LIVALO [Concomitant]
     Dosage: 2 MG, 1 DAYS
     Route: 048
     Dates: start: 20120706
  10. TANATRIL [Concomitant]
     Dosage: 5 MG, 1 DAYS
     Route: 048
  11. FLIVAS [Concomitant]
     Indication: DYSURIA
     Dosage: 50 MG, 1 DAYS
     Route: 048
  12. THYRADIN-S [Concomitant]
     Indication: HYPOTHYROIDISM
     Dosage: 100 ?G, 1 DAYS
     Route: 048
  13. ONEALFA [Concomitant]
     Dosage: 0.25 ?G, 1 DAYS
     Route: 048
  14. MAINTATE [Concomitant]
     Dosage: 5 MG, 1 DAYS
     Route: 048
  15. OLMETEC [Concomitant]
     Dosage: 20 MG, 1DAYS
     Route: 048
  16. CALCIUM CARBONATE [Concomitant]
     Dosage: 1500 MG, 1 DAYS
     Route: 048

REACTIONS (3)
  - Acute respiratory distress syndrome [Fatal]
  - Pneumonia [Not Recovered/Not Resolved]
  - Pyelonephritis [Not Recovered/Not Resolved]
